FAERS Safety Report 4719464-9 (Version None)
Quarter: 2005Q3

REPORT INFORMATION
  Report Type: 
  Country: None (occurrence: None)
  Receive Date: 20050719
  Receipt Date: 20050630
  Transmission Date: 20060218
  Serious: Yes (Hospitalization)
  Sender: FDA-Public Use
  Company Number: US_0506119665

PATIENT
  Age: 49 Year
  Sex: Female
  Weight: 100 kg

DRUGS (6)
  1. GEMCITABINE HYDROCHLORIDE-IV (GEMCITABINE) [Suspect]
     Indication: BREAST CANCER METASTATIC
     Dosage: 1250 MG/M2
     Dates: start: 20050525
  2. HERCEPTIN [Suspect]
     Indication: BREAST CANCER METASTATIC
     Dosage: 6 MG/KG
     Dates: start: 20050525
  3. AREDIA [Concomitant]
  4. ARANESP [Concomitant]
  5. XANAX [Concomitant]
  6. LOPRESSOR [Concomitant]

REACTIONS (9)
  - ALANINE AMINOTRANSFERASE INCREASED [None]
  - ASPARTATE AMINOTRANSFERASE INCREASED [None]
  - BLOOD ALKALINE PHOSPHATASE INCREASED [None]
  - CELLULITIS [None]
  - DISEASE RECURRENCE [None]
  - ERYTHEMA NODOSUM [None]
  - HAEMOGLOBIN DECREASED [None]
  - PYREXIA [None]
  - RASH [None]
